FAERS Safety Report 4682329-5 (Version None)
Quarter: 2005Q2

REPORT INFORMATION
  Report Type: 
  Country: None (occurrence: None)
  Receive Date: 20050602
  Receipt Date: 20050602
  Transmission Date: 20051028
  Serious: Yes (Other)
  Sender: FDA-Public Use
  Company Number: None

PATIENT
  Age: 40 Year
  Sex: Female
  Weight: 65.7716 kg

DRUGS (3)
  1. ZOLOFT [Suspect]
     Indication: DEPRESSION
     Dosage: 1/2 TAB (25 MG) DAILY
     Dates: start: 20050516, end: 20050521
  2. ALBUTEROL [Concomitant]
  3. ADVAIR [Concomitant]

REACTIONS (13)
  - ABNORMAL DREAMS [None]
  - ANXIETY [None]
  - COUGH [None]
  - DIFFICULTY IN WALKING [None]
  - DYSGRAPHIA [None]
  - DYSKINESIA [None]
  - DYSPNOEA [None]
  - FEELING JITTERY [None]
  - GAIT DISTURBANCE [None]
  - INSOMNIA [None]
  - MUSCLE TWITCHING [None]
  - SUICIDAL IDEATION [None]
  - THINKING ABNORMAL [None]
